FAERS Safety Report 21064157 (Version 1)
Quarter: 2022Q3

REPORT INFORMATION
  Report Type: Spontaneous
  Country: US (occurrence: None)
  Receive Date: 20220708
  Receipt Date: 20220708
  Transmission Date: 20221027
  Serious: No
  Sender: FDA-Public Use
  Company Number: None

PATIENT
  Age: 75 Year
  Sex: Female

DRUGS (1)
  1. ENBREL [Suspect]
     Active Substance: ETANERCEPT
     Indication: Sjogren^s syndrome
     Dosage: 50MG EVERY WEEK SQ?
     Route: 058
     Dates: start: 20220506

REACTIONS (6)
  - Therapeutic product effect decreased [None]
  - Peripheral swelling [None]
  - Pain in extremity [None]
  - Arthralgia [None]
  - Pyrexia [None]
  - Condition aggravated [None]

NARRATIVE: CASE EVENT DATE: 20220506
